FAERS Safety Report 7650870-9 (Version None)
Quarter: 2011Q3

REPORT INFORMATION
  Report Type: 
  Country: None (occurrence: None)
  Receive Date: 20110802
  Receipt Date: 20110727
  Transmission Date: 20111222
  Serious: Yes (Other)
  Sender: FDA-Public Use
  Company Number: BR-ABBOTT-11P-020-0842114-00

PATIENT
  Sex: Female
  Weight: 70 kg

DRUGS (8)
  1. OMEPRAZOLE [Concomitant]
     Indication: GASTRIC DISORDER
  2. PREDNISONE [Concomitant]
     Indication: PAIN
     Route: 048
  3. OMEPRAZOLE [Concomitant]
     Indication: PROPHYLAXIS
     Route: 048
  4. GLUCOSAMINE [Concomitant]
     Indication: CHONDROPATHY
     Route: 048
     Dates: start: 20110501
  5. HUMIRA [Suspect]
     Indication: RHEUMATOID ARTHRITIS
     Route: 058
     Dates: start: 20110201
  6. FLUOXETINE [Concomitant]
     Indication: DEPRESSION
     Route: 048
  7. METHOTREXATE [Concomitant]
     Indication: RHEUMATOID ARTHRITIS
     Route: 048
  8. FOLIC ACID [Concomitant]
     Indication: RHEUMATOID ARTHRITIS
     Route: 048

REACTIONS (12)
  - RHINALGIA [None]
  - DIARRHOEA [None]
  - MEMORY IMPAIRMENT [None]
  - SINUSITIS [None]
  - RETCHING [None]
  - RHEUMATOID ARTHRITIS [None]
  - BONE EROSION [None]
  - BONE DISORDER [None]
  - MOUTH ULCERATION [None]
  - ARTHRALGIA [None]
  - HEADACHE [None]
  - PAIN IN EXTREMITY [None]
